FAERS Safety Report 19703404 (Version 3)
Quarter: 2021Q4

REPORT INFORMATION
  Report Type: Report from Study
  Country: None (occurrence: FR)
  Receive Date: 20210816
  Receipt Date: 20211007
  Transmission Date: 20220303
  Serious: Yes (Death, Hospitalization)
  Sender: FDA-Public Use
  Company Number: FR-ABBVIE-21K-056-4039020-00

PATIENT
  Age: 75 Year
  Sex: Female

DRUGS (2)
  1. CARBIDOPA\LEVODOPA [Suspect]
     Active Substance: CARBIDOPA\LEVODOPA
     Indication: Parkinson^s disease
     Route: 050
     Dates: start: 201606
  2. CARBIDOPA\LEVODOPA [Suspect]
     Active Substance: CARBIDOPA\LEVODOPA

REACTIONS (3)
  - Death [Fatal]
  - Pneumonia [Not Recovered/Not Resolved]
  - Device use issue [Not Recovered/Not Resolved]

NARRATIVE: CASE EVENT DATE: 20210101
